FAERS Safety Report 18746826 (Version 2)
Quarter: 2021Q1

REPORT INFORMATION
  Report Type: Report from Study
  Country: DE (occurrence: DE)
  Receive Date: 20210115
  Receipt Date: 20210318
  Transmission Date: 20210419
  Serious: Yes (Hospitalization)
  Sender: FDA-Public Use
  Company Number: DE-ROCHE-2747579

PATIENT
  Age: 65 Year
  Sex: Female
  Weight: 52 kg

DRUGS (2)
  1. COBIMETINIB. [Suspect]
     Active Substance: COBIMETINIB
     Indication: MALIGNANT MELANOMA
     Dosage: ON 22/DEC/2020, SHE RECEIVED THE LAST DOSE OF ORAL COBIMETINIB PRIOR TO THE ONSET OF SERIOUS ADVERSE
     Route: 048
     Dates: start: 20201112, end: 20201222
  2. VEMURAFENIB. [Suspect]
     Active Substance: VEMURAFENIB
     Indication: MALIGNANT MELANOMA
     Dosage: ON 22/DEC/2020, SHE RECEIVED THE LAST DOSE OF ORAL VEMURAFENIB PRIOR TO THE ONSET OF SERIOUS ADVERSE
     Route: 048
     Dates: start: 20201112, end: 20201222

REACTIONS (3)
  - Haemorrhage [Recovered/Resolved]
  - Hemiparesis [Recovered/Resolved]
  - Metastases to central nervous system [Recovered/Resolved]

NARRATIVE: CASE EVENT DATE: 20201222
